FAERS Safety Report 13431956 (Version 1)
Quarter: 2017Q2

REPORT INFORMATION
  Report Type: Spontaneous
  Country: US (occurrence: US)
  Receive Date: 20170412
  Receipt Date: 20170412
  Transmission Date: 20170830
  Serious: No
  Sender: FDA-Public Use
  Company Number: US-SHIRE-US201708038

PATIENT
  Age: 82 Year
  Sex: Female
  Weight: 72.56 kg

DRUGS (2)
  1. TEARS NATURALE                     /00134201/ [Concomitant]
     Indication: DRY EYE
     Dosage: UNK, AS REQ^D
     Route: 047
  2. XIIDRA [Suspect]
     Active Substance: LIFITEGRAST
     Indication: DRY EYE
     Dosage: 1 GTT, 2X/DAY:BID (1 DROP BOTH EYES)
     Route: 047
     Dates: start: 201703

REACTIONS (3)
  - Vision blurred [Not Recovered/Not Resolved]
  - Product quality issue [Unknown]
  - Eye pain [Not Recovered/Not Resolved]

NARRATIVE: CASE EVENT DATE: 201703
